FAERS Safety Report 12501363 (Version 1)
Quarter: 2016Q2

REPORT INFORMATION
  Report Type: Spontaneous
  Country: US (occurrence: US)
  Receive Date: 20160627
  Receipt Date: 20160627
  Transmission Date: 20160815
  Serious: Yes (Death, Hospitalization, Other)
  Sender: FDA-Public Use
  Company Number: US-OTSUKA-2016_015153

PATIENT
  Age: 60 Year
  Sex: Male

DRUGS (4)
  1. SAMSCA [Suspect]
     Active Substance: TOLVAPTAN
     Indication: PRODUCT USED FOR UNKNOWN INDICATION
     Dosage: 15 MG, UNK
     Route: 065
  2. ADVAIR DISKUS [Suspect]
     Active Substance: FLUTICASONE PROPIONATE\SALMETEROL XINAFOATE
     Indication: CHRONIC OBSTRUCTIVE PULMONARY DISEASE
     Dosage: UNK
     Route: 065
  3. LEVOPHED [Concomitant]
     Active Substance: NOREPINEPHRINE BITARTRATE
     Indication: PRODUCT USED FOR UNKNOWN INDICATION
     Dosage: UNK
     Route: 065
  4. LOVENOX [Concomitant]
     Active Substance: ENOXAPARIN SODIUM
     Indication: PRODUCT USED FOR UNKNOWN INDICATION
     Dosage: UNK
     Route: 065

REACTIONS (25)
  - Coronary arterial stent insertion [Unknown]
  - Endotracheal intubation [Unknown]
  - Respiratory failure [Unknown]
  - Anaemia [Unknown]
  - Mechanical ventilation [Unknown]
  - Dialysis [Unknown]
  - Cardiac arrest [Unknown]
  - Condition aggravated [Unknown]
  - Somnolence [Unknown]
  - Pneumonia [Unknown]
  - Cardiac failure congestive [Unknown]
  - Life support [Unknown]
  - Rales [Unknown]
  - Hypotension [Unknown]
  - Sepsis [Unknown]
  - Fatigue [Unknown]
  - Hyperlipidaemia [Unknown]
  - Atrial fibrillation [Unknown]
  - Dyspnoea at rest [Unknown]
  - Tachycardia [Unknown]
  - Generalised oedema [Unknown]
  - Death [Fatal]
  - Acute kidney injury [Unknown]
  - Coronary artery disease [Unknown]
  - Wheezing [Unknown]

NARRATIVE: CASE EVENT DATE: 201604
